FAERS Safety Report 9927382 (Version 2)
Quarter: 2014Q2

REPORT INFORMATION
  Report Type: Spontaneous
  Country: DE (occurrence: DE)
  Receive Date: 20140226
  Receipt Date: 20140401
  Transmission Date: 20141212
  Serious: Yes (Life-Threatening, Hospitalization)
  Sender: FDA-Public Use
  Company Number: DE-BRISTOL-MYERS SQUIBB COMPANY-20240065

PATIENT
  Age: 45 Year
  Sex: Male

DRUGS (1)
  1. FORXIGA [Suspect]
     Indication: DIABETES MELLITUS
     Dosage: TABLETS
     Dates: start: 201309, end: 201402

REACTIONS (2)
  - Abscess [Recovering/Resolving]
  - Intervertebral discitis [Recovering/Resolving]
